FAERS Safety Report 22647367 (Version 1)
Quarter: 2023Q2

REPORT INFORMATION
  Report Type: Spontaneous
  Country: US (occurrence: US)
  Receive Date: 20230627
  Receipt Date: 20230627
  Transmission Date: 20230722
  Serious: No
  Sender: FDA-Public Use
  Company Number: US-009507513-2306USA005254

PATIENT
  Age: 18 Year
  Sex: Female

DRUGS (2)
  1. TEMODAR [Suspect]
     Active Substance: TEMOZOLOMIDE
     Indication: Ewing^s sarcoma recurrent
     Dosage: UNK
  2. TEMODAR [Suspect]
     Active Substance: TEMOZOLOMIDE
     Indication: Metastases to lung

REACTIONS (1)
  - Product use in unapproved indication [Unknown]
